FAERS Safety Report 22267110 (Version 1)
Quarter: 2023Q2

REPORT INFORMATION
  Report Type: Spontaneous
  Country: US (occurrence: US)
  Receive Date: 20230428
  Receipt Date: 20230428
  Transmission Date: 20230721
  Serious: No
  Sender: FDA-Public Use
  Company Number: US-TEVA-2023-US-2877274

PATIENT
  Age: 58 Year
  Sex: Male

DRUGS (4)
  1. PENICILLIN V POTASSIUM [Suspect]
     Active Substance: PENICILLIN V POTASSIUM
     Indication: Product used for unknown indication
     Route: 065
  2. ERYTHROMYCIN ESTOLATE [Suspect]
     Active Substance: ERYTHROMYCIN ESTOLATE
     Indication: Product used for unknown indication
     Route: 065
  3. DEPAKOTE [Suspect]
     Active Substance: DIVALPROEX SODIUM
     Indication: Product used for unknown indication
     Route: 065
  4. AUSTEDO [Concomitant]
     Active Substance: DEUTETRABENAZINE
     Indication: Tardive dyskinesia
     Dosage: 24 MILLIGRAM DAILY;
     Route: 065
     Dates: start: 20230224

REACTIONS (1)
  - Rash [Unknown]
